FAERS Safety Report 19414346 (Version 2)
Quarter: 2021Q3

REPORT INFORMATION
  Report Type: Spontaneous
  Country: SK (occurrence: SK)
  Receive Date: 20210615
  Receipt Date: 20210726
  Transmission Date: 20211014
  Serious: Yes (Life-Threatening, Hospitalization, Other)
  Sender: FDA-Public Use
  Company Number: SK-AMGEN-SVKSP2021088681

PATIENT
  Age: 33 Year
  Sex: Male
  Weight: 83 kg

DRUGS (7)
  1. VINCRISTINE [Concomitant]
     Active Substance: VINCRISTINE
  2. CYCLOPHOSPHAMIDE. [Concomitant]
     Active Substance: CYCLOPHOSPHAMIDE
  3. DOXORUBICIN [Concomitant]
     Active Substance: DOXORUBICIN
  4. CIPROFLOXACIN. [Concomitant]
     Active Substance: CIPROFLOXACIN
  5. PEGFILGRASTIM [Suspect]
     Active Substance: PEGFILGRASTIM
     Indication: PROPHYLAXIS
     Route: 065
  6. GRASUSTEK [Concomitant]
     Indication: PROPHYLAXIS
     Dosage: UNK
     Dates: start: 202008
  7. AMOXYCILLIN [AMOXICILLIN] [Concomitant]

REACTIONS (5)
  - Thrombocytopenia [Unknown]
  - Neutrophil count decreased [Unknown]
  - Cough [Unknown]
  - Anaemia [Unknown]
  - White blood cell count decreased [Unknown]
